FAERS Safety Report 8234786-5 (Version None)
Quarter: 2012Q1

REPORT INFORMATION
  Report Type: 
  Country: None (occurrence: None)
  Receive Date: 20120322
  Receipt Date: 20120315
  Transmission Date: 20120608
  Serious: Yes (Other)
  Sender: FDA-Public Use
  Company Number: 216908

PATIENT
  Age: 68 Year
  Sex: Female
  Weight: 55 kg

DRUGS (1)
  1. INNOHEP [Suspect]
     Indication: THROMBOPHLEBITIS SUPERFICIAL
     Dosage: 0.5 ML, SUBCUTANEOUS
     Route: 058
     Dates: start: 20120109

REACTIONS (3)
  - CONDITION AGGRAVATED [None]
  - THROMBOPHLEBITIS SUPERFICIAL [None]
  - OFF LABEL USE [None]
